FAERS Safety Report 21026084 (Version 1)
Quarter: 2022Q2

REPORT INFORMATION
  Report Type: Spontaneous
  Country: IR (occurrence: IR)
  Receive Date: 20220630
  Receipt Date: 20220630
  Transmission Date: 20220720
  Serious: Yes (Death, Hospitalization, Other)
  Sender: FDA-Public Use
  Company Number: IR-APOTEX-2022AP009703

PATIENT
  Age: 60 Year
  Sex: Female

DRUGS (2)
  1. ALPRAZOLAM [Suspect]
     Active Substance: ALPRAZOLAM
     Indication: Product used for unknown indication
     Dosage: UNK
     Route: 065
  2. AMPHETAMINE [Suspect]
     Active Substance: AMPHETAMINE
     Indication: Product used for unknown indication
     Dosage: UNK
     Route: 065

REACTIONS (14)
  - Cardio-respiratory arrest [Fatal]
  - Gastrointestinal perforation [Fatal]
  - Toxicity to various agents [Fatal]
  - Completed suicide [Fatal]
  - Peptic ulcer perforation [Fatal]
  - Metabolic encephalopathy [Fatal]
  - Renal failure [Fatal]
  - Sepsis [Fatal]
  - Depressed level of consciousness [Unknown]
  - Drug screen positive [Unknown]
  - Peritonitis [Unknown]
  - Disseminated intravascular coagulation [Unknown]
  - Dizziness [Unknown]
  - Somnolence [Unknown]
